FAERS Safety Report 13975629 (Version 2)
Quarter: 2017Q3

REPORT INFORMATION
  Report Type: Spontaneous
  Country: US (occurrence: US)
  Receive Date: 20170915
  Receipt Date: 20170922
  Transmission Date: 20171128
  Serious: No
  Sender: FDA-Public Use
  Company Number: US-PFIZER INC-2017398850

PATIENT
  Age: 81 Year
  Sex: Female
  Weight: 58 kg

DRUGS (14)
  1. MARIJUANA [Concomitant]
     Active Substance: CANNABIS SATIVA SUBSP. INDICA TOP
     Indication: SLEEP DISORDER
     Dosage: A COUPLE OF DROPS OF IT UNDER HER TONGUE
     Route: 060
  2. UNISOM SLEEPTABS [Concomitant]
     Active Substance: DOXYLAMINE SUCCINATE
     Indication: SLEEP DISORDER
     Dosage: 1 DF, DAILY
  3. MIDRIN /00450801/ [Concomitant]
     Active Substance: ACETAMINOPHEN\DICHLORALPHENAZONE\ISOMETHEPTENE HYDROCHLORIDE
     Indication: MIGRAINE
     Dosage: 2 TABLETS TO BEGIN WITH AND 1 EVERY HOUR UP TO 5 TABLETS PER 12 HOURS
  4. IBRANCE [Suspect]
     Active Substance: PALBOCICLIB
     Indication: BREAST CANCER
     Dosage: 125MG, CYCLIC (3 WEEKS ON AND 1 WEEK OFF / FOR 21 DAYS AND THEN 7 DAYS OFF)
     Route: 048
     Dates: start: 201705
  5. MELATONIN [Concomitant]
     Active Substance: MELATONIN
     Indication: SLEEP DISORDER
     Dosage: 10 MG, AS NEEDED
  6. MARIJUANA [Concomitant]
     Active Substance: CANNABIS SATIVA SUBSP. INDICA TOP
     Indication: DEPRESSION
  7. CARVEDILOL. [Concomitant]
     Active Substance: CARVEDILOL
     Dosage: 6.25 MG, 2X/DAY
  8. TYLENOL EXTRA STRENGTH [Concomitant]
     Active Substance: ACETAMINOPHEN
     Indication: HEADACHE
     Dosage: 1 DF, AS NEEDED
  9. SYNTHROID [Concomitant]
     Active Substance: LEVOTHYROXINE SODIUM
     Indication: THYROID DISORDER
     Dosage: 100 UG, DAILY
  10. DIAZEPAM. [Concomitant]
     Active Substance: DIAZEPAM
     Indication: ANXIETY
     Dosage: 5 MG, AS NEEDED; 1 TO 2 TABLETS BY MOUTH EVERY 12 HOURS AS NEEDED
  11. FASLODEX [Concomitant]
     Active Substance: FULVESTRANT
     Dosage: UNK
  12. CARVEDILOL. [Concomitant]
     Active Substance: CARVEDILOL
     Indication: CARDIOMYOPATHY
     Dosage: 6.45 MG, 2X/DAY
  13. HYLAND^S LEG CRAMPS [Concomitant]
     Active Substance: HOMEOPATHICS
     Indication: MUSCLE SPASMS
     Dosage: 2 DF, AS NEEDED
     Route: 060
  14. DIAZEPAM. [Concomitant]
     Active Substance: DIAZEPAM
     Indication: NERVOUSNESS

REACTIONS (6)
  - Ocular hyperaemia [Recovering/Resolving]
  - Memory impairment [Unknown]
  - Fatigue [Not Recovered/Not Resolved]
  - Rhinorrhoea [Recovering/Resolving]
  - Feeling abnormal [Not Recovered/Not Resolved]
  - Asthenia [Unknown]

NARRATIVE: CASE EVENT DATE: 201706
